FAERS Safety Report 24879644 (Version 1)
Quarter: 2025Q1

REPORT INFORMATION
  Report Type: Spontaneous
  Country: FR (occurrence: FR)
  Receive Date: 20250123
  Receipt Date: 20250123
  Transmission Date: 20250409
  Serious: Yes (Hospitalization)
  Sender: MYLAN
  Company Number: None

PATIENT
  Age: 59 Year
  Sex: Male
  Weight: 53 kg

DRUGS (1)
  1. CLOZAPINE [Suspect]
     Active Substance: CLOZAPINE
     Indication: Parkinson^s disease psychosis
     Dosage: 2 DOSAGE FORM, QD
     Route: 048
     Dates: start: 20240727, end: 20240803

REACTIONS (4)
  - Psychomotor skills impaired [Recovering/Resolving]
  - Hypotonia [Recovering/Resolving]
  - Bedridden [Recovering/Resolving]
  - Somnolence [Recovering/Resolving]

NARRATIVE: CASE EVENT DATE: 20240803
